FAERS Safety Report 11509942 (Version 1)
Quarter: 2015Q3

REPORT INFORMATION
  Report Type: Spontaneous
  Country: US (occurrence: US)
  Receive Date: 20150915
  Receipt Date: 20150915
  Transmission Date: 20151125
  Serious: No
  Sender: FDA-Public Use
  Company Number: US-JNJFOC-20150723385

PATIENT
  Sex: Female

DRUGS (1)
  1. CHILDRENS SUDAFED NASAL DECONGESTANT [Suspect]
     Active Substance: PSEUDOEPHEDRINE HYDROCHLORIDE
     Indication: MULTIPLE ALLERGIES
     Dosage: APPROX. 2 TABLESPOONS, , 1X PER??DAY IN SPRING AND SUMMER SEASONS
     Route: 048

REACTIONS (5)
  - Product use issue [Recovered/Resolved]
  - Wrong technique in product usage process [Recovered/Resolved]
  - Incorrect dose administered [Recovered/Resolved]
  - Therapeutic response unexpected [Unknown]
  - Fatigue [Recovered/Resolved]
